FAERS Safety Report 10036100 (Version 2)
Quarter: 2014Q2

REPORT INFORMATION
  Report Type: Spontaneous
  Country: JP (occurrence: JP)
  Receive Date: 20140325
  Receipt Date: 20140409
  Transmission Date: 20141212
  Serious: Yes (Other)
  Sender: FDA-Public Use
  Company Number: JP-ASTELLAS-2014US003049

PATIENT
  Age: 72 Year
  Sex: Male

DRUGS (4)
  1. AMBISOME [Suspect]
     Indication: BRONCHOPULMONARY ASPERGILLOSIS
     Dosage: 2.5 MG/KG, WEEKLY
     Route: 050
  2. AMBISOME [Suspect]
     Dosage: 5 MG/KG, WEEKLY
     Route: 050
  3. AMBISOME [Suspect]
     Dosage: 2.5 MG/KG, UNKNOWN/D
     Route: 050
  4. ITRACONAZOLE [Concomitant]
     Indication: PRODUCT USED FOR UNKNOWN INDICATION
     Dosage: UNK
     Route: 065

REACTIONS (1)
  - Pulmonary cavitation [Unknown]
